FAERS Safety Report 9630750 (Version 2)
Quarter: 2013Q4

REPORT INFORMATION
  Report Type: Spontaneous
  Country: US (occurrence: None)
  Receive Date: 20131015
  Receipt Date: 20131028
  Transmission Date: 20140711
  Serious: Yes (Other)
  Sender: FDA-Public Use
  Company Number: HT-2013-779-0004

PATIENT
  Age: 53 Year
  Sex: Female

DRUGS (23)
  1. LACTULOSE [Suspect]
     Indication: CONSTIPATION
     Dates: start: 20120717, end: 20130921
  2. LANSOPRAZOLE [Suspect]
     Dates: start: 20130528, end: 20130928
  3. FLUTICASONE PROP 50 MCG SPRAY [Concomitant]
  4. PREDNISONE 10 MG TABLET [Concomitant]
  5. CITALOPRAM HBR 10MG TABLET [Concomitant]
  6. PREDNISONE 20 MG TABLET [Concomitant]
  7. MONTELUKAST SOD 10 MG TABLET [Concomitant]
  8. AMOXCILLIN 500 MG CAPSULE [Concomitant]
  9. AZITHROMYCIN 250 MG DOSE PACK [Concomitant]
  10. FLUZONE 2013-2014 VIAL [Concomitant]
  11. OXYCODONE-ACETAMINOPHEN [Concomitant]
  12. PROAIR HFA [Concomitant]
  13. TRAMADOL HCL 50 MG TABLET [Concomitant]
  14. LORATIDINE 10 MG TABLET [Concomitant]
  15. PREDNISONE 5 MG TABLET [Concomitant]
  16. AMOX-TRK CVL 875-125 MG TAB [Concomitant]
  17. AMOXCILLIN 875 MG TABLET [Concomitant]
  18. CYCLOBENZAPRINE 10 MG TABLET [Concomitant]
  19. OMERPARAZOLE DR MG CAPSULE [Concomitant]
  20. OXYCODONE HCL 5 MG TABLET [Concomitant]
  21. SYMBICORT [Concomitant]
  22. LEVOFLOXACIN 500 MG TABLET [Concomitant]
  23. METHYLPREDNISOLONE 4 MG DOSEPK [Concomitant]

REACTIONS (12)
  - Bite [None]
  - Back pain [None]
  - Pruritus [None]
  - Sensation of foreign body [None]
  - Joint lock [None]
  - Muscle spasms [None]
  - Helminthic infection [None]
  - Parasite stool test positive [None]
  - Formication [None]
  - Rash [None]
  - Product contamination [None]
  - Poor quality drug administered [None]
